FAERS Safety Report 6242363-0 (Version None)
Quarter: 2009Q2

REPORT INFORMATION
  Report Type: 
  Country: None (occurrence: None)
  Receive Date: 20090622
  Receipt Date: 20090622
  Transmission Date: 20091009
  Serious: No
  Sender: FDA-Public Use
  Company Number: None

PATIENT
  Age: 41 Year
  Sex: Male
  Weight: 81.6475 kg

DRUGS (3)
  1. ZICAM NAZAL GEL [Suspect]
     Indication: NASOPHARYNGITIS
     Dosage: NASAL
     Route: 045
     Dates: start: 20070201, end: 20070430
  2. ZICAM NAZAL GEL [Suspect]
     Indication: NASOPHARYNGITIS
     Dosage: NASAL
     Route: 045
     Dates: start: 20080101, end: 20080430
  3. . [Concomitant]

REACTIONS (2)
  - AGEUSIA [None]
  - ANOSMIA [None]
